FAERS Safety Report 9524166 (Version 1)
Quarter: 2013Q1

REPORT INFORMATION
  Report Type: Spontaneous
  Country: US (occurrence: None)
  Receive Date: 20130314
  Receipt Date: 20130314
  Transmission Date: 20140127
  Serious: No
  Sender: FDA-Public Use
  Company Number: 1302USA001704

PATIENT
  Age: 61 Year
  Sex: Male

DRUGS (4)
  1. VICTRELIS (BOCEPREVIR) CAPSULE [Suspect]
     Indication: HEPATITIS C
     Dosage: UNK, ORAL
     Route: 048
     Dates: start: 20130103
  2. RIBAVIRIN (RIBAVIRIN) CAPSULE [Suspect]
     Indication: HEPATITIS C
     Dosage: UNK, ORAL
     Route: 048
     Dates: start: 20130102
  3. PEGASYS (PEGINTERFERON ALFA-2A) [Suspect]
     Indication: HEPATITIS C
     Dosage: UNK, UNKNOWN
     Dates: start: 20130102
  4. PEGASYS (PEGINTERFERON ALFA-2A) [Suspect]
     Dosage: UNK, UNKNOWN
     Dates: start: 20130102

REACTIONS (2)
  - Irritability [None]
  - Dry mouth [None]
